FAERS Safety Report 6781580-8 (Version None)
Quarter: 2010Q2

REPORT INFORMATION
  Report Type: 
  Country: None (occurrence: None)
  Receive Date: 20100621
  Receipt Date: 20100610
  Transmission Date: 20101027
  Serious: Yes (Other)
  Sender: FDA-Public Use
  Company Number: US-BAYER-201011130BCC

PATIENT
  Age: 60 Year
  Sex: Female
  Weight: 104 kg

DRUGS (9)
  1. ASPIRIN [Suspect]
     Indication: PROPHYLAXIS
     Dosage: UNIT DOSE: 81 MG
     Route: 048
     Dates: start: 20090101
  2. BAYER HEART HEALTH ADVANTAGE [Suspect]
     Indication: BLOOD CHOLESTEROL INCREASED
     Dosage: TOTAL DAILY DOSE: 2 DF  UNIT DOSE: 1 DF
     Route: 048
     Dates: start: 20100603, end: 20100608
  3. QVC MULTIVITAMINS [Concomitant]
     Route: 065
  4. VITAMIN C [Concomitant]
     Route: 065
  5. VITAMIN D [Concomitant]
     Route: 065
  6. LOVAZA [Concomitant]
     Route: 065
  7. OXYCODONE [Concomitant]
     Route: 065
  8. LIDODERM [Concomitant]
     Route: 065
  9. DARVOCET [Concomitant]
     Route: 065

REACTIONS (5)
  - BLOOD PRESSURE SYSTOLIC INCREASED [None]
  - HAEMORRHAGE URINARY TRACT [None]
  - PAIN [None]
  - TINNITUS [None]
  - URINARY TRACT INFECTION [None]
